FAERS Safety Report 5592508-0 (Version None)
Quarter: 2008Q1

REPORT INFORMATION
  Report Type: 
  Country: None (occurrence: None)
  Receive Date: 20080115
  Receipt Date: 20080103
  Transmission Date: 20080703
  Serious: Yes (Other)
  Sender: FDA-Public Use
  Company Number: US-PFIZER INC-2008001312

PATIENT
  Sex: Female
  Weight: 68 kg

DRUGS (3)
  1. LYRICA [Suspect]
     Indication: BACK PAIN
     Dates: start: 20070801, end: 20071001
  2. LYRICA [Suspect]
     Indication: PARAESTHESIA
  3. VICODIN [Concomitant]

REACTIONS (1)
  - COLITIS [None]
